FAERS Safety Report 25651176 (Version 2)
Quarter: 2025Q3

REPORT INFORMATION
  Report Type: Spontaneous
  Country: BR (occurrence: BR)
  Receive Date: 20250806
  Receipt Date: 20250916
  Transmission Date: 20251021
  Serious: Yes (Other)
  Sender: PFIZER
  Company Number: BR-PFIZER INC-PV202500093975

PATIENT
  Age: 43 Year
  Sex: Male

DRUGS (1)
  1. INFLIXIMAB [Suspect]
     Active Substance: INFLIXIMAB
     Indication: Ankylosing spondylitis

REACTIONS (12)
  - Large intestinal ulcer [Unknown]
  - Rectal ulcer [Unknown]
  - Sinusitis [Recovering/Resolving]
  - Nasal septum deviation [Recovering/Resolving]
  - Tendonitis [Recovering/Resolving]
  - Bursitis [Recovering/Resolving]
  - Gait inability [Recovering/Resolving]
  - Hypoacusis [Unknown]
  - COVID-19 [Recovering/Resolving]
  - Condition aggravated [Not Recovered/Not Resolved]
  - Otorrhoea [Unknown]
  - Off label use [Unknown]

NARRATIVE: CASE EVENT DATE: 20240901
